FAERS Safety Report 8064273-9 (Version None)
Quarter: 2012Q1

REPORT INFORMATION
  Report Type: 
  Country: None (occurrence: None)
  Receive Date: 20120123
  Receipt Date: 20120118
  Transmission Date: 20120608
  Serious: Yes (Other)
  Sender: FDA-Public Use
  Company Number: US-BAYER-200921443NA

PATIENT
  Age: 38 Year
  Sex: Female
  Weight: 108.64 kg

DRUGS (15)
  1. MYCOPHENOLATE MOFETIL (CELLCEPT) [Concomitant]
  2. PROGRAF [Concomitant]
  3. NORVASC [Concomitant]
  4. CYTOXAN [Concomitant]
  5. CONTRAST MEDIA [Suspect]
     Indication: NUCLEAR MAGNETIC RESONANCE IMAGING
     Dosage: UNK
     Route: 042
  6. PROZAC [Concomitant]
  7. PREDNISONE [Concomitant]
  8. NEUPOGEN [Concomitant]
  9. CONTRAST MEDIA [Suspect]
     Indication: ANGIOGRAM
  10. LASIX [Concomitant]
     Route: 042
  11. MAGNEVIST [Suspect]
     Indication: PRODUCT USED FOR UNKNOWN INDICATION
  12. COUMADIN [Concomitant]
  13. BACTRIM [Concomitant]
  14. MAGNEVIST [Suspect]
     Indication: ANGIOGRAM
  15. AZATHIOPRINE [Concomitant]

REACTIONS (11)
  - PAIN [None]
  - ERYTHEMA [None]
  - BACK PAIN [None]
  - FIBROSIS [None]
  - NEPHROGENIC SYSTEMIC FIBROSIS [None]
  - RASH [None]
  - OEDEMA PERIPHERAL [None]
  - SKIN TIGHTNESS [None]
  - SKIN INDURATION [None]
  - SKIN MASS [None]
  - SKIN PLAQUE [None]
